FAERS Safety Report 5851423-5 (Version None)
Quarter: 2008Q3

REPORT INFORMATION
  Report Type: 
  Country: None (occurrence: None)
  Receive Date: 20080731
  Receipt Date: 20080411
  Transmission Date: 20090109
  Serious: No
  Sender: FDA-Public Use
  Company Number: US200804003537

PATIENT
  Age: 55 Year
  Sex: Male

DRUGS (7)
  1. BYETTA [Suspect]
     Indication: INSULIN-REQUIRING TYPE 2 DIABETES MELLITUS
     Dosage: 10 UG, 2/D, SUBCUTANEOUS : 5 UG, 2/D, SUBCUTANEOUS
     Route: 058
     Dates: start: 20080301, end: 20080301
  2. BYETTA [Suspect]
     Indication: INSULIN-REQUIRING TYPE 2 DIABETES MELLITUS
     Dosage: 10 UG, 2/D, SUBCUTANEOUS : 5 UG, 2/D, SUBCUTANEOUS
     Route: 058
     Dates: start: 20080301
  3. EXENATIDE PEN, DISPOSABLE DEVCIE (EXENATIDE PEN) PEN,DISPOSABLE [Concomitant]
  4. LANTUS [Concomitant]
  5. METFORMIN HCL [Concomitant]
  6. AMARYL [Concomitant]
  7. ACTOS [Concomitant]

REACTIONS (2)
  - DRUG PRESCRIBING ERROR [None]
  - NAUSEA [None]
